FAERS Safety Report 6255171-1 (Version None)
Quarter: 2009Q3

REPORT INFORMATION
  Report Type: 
  Country: None (occurrence: None)
  Receive Date: 20090702
  Receipt Date: 20090624
  Transmission Date: 20100115
  Serious: Yes (Other)
  Sender: FDA-Public Use
  Company Number: PHHY2009BR25805

PATIENT
  Sex: Male
  Weight: 82 kg

DRUGS (3)
  1. RASILEZ [Suspect]
     Indication: HYPERTENSION
     Dosage: 1 TABLET (300 MG)/DAY
     Route: 048
     Dates: start: 20070101
  2. METFORMIN HCL [Concomitant]
     Indication: TYPE 2 DIABETES MELLITUS
     Dosage: 1 TABLET (500 MG) IN THE MORNING
     Route: 048
     Dates: start: 20040101
  3. AMARYL [Concomitant]
     Indication: TYPE 2 DIABETES MELLITUS
     Dosage: 1 TABLET AFTER THE LUNCH
     Route: 048
     Dates: start: 20040101

REACTIONS (1)
  - GLAUCOMA SURGERY [None]
